FAERS Safety Report 25192137 (Version 1)
Quarter: 2025Q2

REPORT INFORMATION
  Report Type: Spontaneous
  Country: US (occurrence: None)
  Receive Date: 20250413
  Receipt Date: 20250413
  Transmission Date: 20250717
  Serious: Yes (unspecified)
  Sender: FDA-CTU
  Company Number: None

PATIENT
  Age: 32 Year
  Sex: Female
  Weight: 97.2 kg

DRUGS (2)
  1. ICY HOT [Suspect]
     Active Substance: LIDOCAINE\MENTHOL
     Indication: Muscle strain
     Route: 061
     Dates: start: 20250409, end: 20250410
  2. CITALOPRAM [Concomitant]
     Active Substance: CITALOPRAM

REACTIONS (4)
  - Application site erythema [None]
  - Application site swelling [None]
  - Application site vesicles [None]
  - Application site pain [None]

NARRATIVE: CASE EVENT DATE: 20250409
